FAERS Safety Report 13408295 (Version 1)
Quarter: 2017Q2

REPORT INFORMATION
  Report Type: Spontaneous
  Country: US (occurrence: US)
  Receive Date: 20170406
  Receipt Date: 20170406
  Transmission Date: 20170830
  Serious: No
  Sender: FDA-Public Use
  Company Number: US-009507513-1703USA011095

PATIENT
  Age: 33 Year
  Sex: Female
  Weight: 57.14 kg

DRUGS (1)
  1. NEXPLANON [Suspect]
     Active Substance: ETONOGESTREL
     Indication: CONTRACEPTION
     Dosage: 3 YEAR IMPLANT
     Route: 059

REACTIONS (5)
  - Uterine spasm [Unknown]
  - Genital pain [Unknown]
  - Hypoaesthesia [Unknown]
  - Headache [Unknown]
  - Abdominal distension [Unknown]
